FAERS Safety Report 17160488 (Version 2)
Quarter: 2019Q4

REPORT INFORMATION
  Report Type: Spontaneous
  Country: PT (occurrence: PT)
  Receive Date: 20191216
  Receipt Date: 20191224
  Transmission Date: 20200122
  Serious: Yes (Other)
  Sender: FDA-Public Use
  Company Number: PT-SHIRE-PT201943251

PATIENT

DRUGS (2)
  1. PYRIDOSTIGMINE [Concomitant]
     Active Substance: PYRIDOSTIGMINE
     Indication: MYASTHENIA GRAVIS
     Route: 065
  2. HUMAN NORMAL IMMUNOGLOBULIN [Suspect]
     Active Substance: HUMAN IMMUNOGLOBULIN G
     Indication: MYASTHENIA GRAVIS
     Dosage: UNK, 1X A MONTH
     Route: 064

REACTIONS (5)
  - Neonatal disorder [Recovered/Resolved]
  - Myasthenia gravis neonatal [Recovered/Resolved]
  - Somnolence neonatal [Recovered/Resolved]
  - Intentional product use issue [Unknown]
  - Poor sucking reflex [Recovered/Resolved]
